FAERS Safety Report 6509546-3 (Version None)
Quarter: 2009Q4

REPORT INFORMATION
  Report Type: 
  Country: None (occurrence: None)
  Receive Date: 20091222
  Receipt Date: 20091214
  Transmission Date: 20100525
  Serious: Yes (Hospitalization)
  Sender: FDA-Public Use
  Company Number: NL-ROCHE-554580

PATIENT
  Weight: 57 kg

DRUGS (7)
  1. CAPECITABINE [Suspect]
     Dosage: LAST DOSE PRIOR TO SAE: 08 APRIL 200.
     Route: 065
     Dates: start: 20080305, end: 20080422
  2. NEXIUM [Concomitant]
  3. VITAMIN B-12 [Concomitant]
     Route: 030
  4. EXELON [Concomitant]
  5. PREDNISONE [Concomitant]
     Route: 048
     Dates: start: 20080902
  6. AUGMENTIN [Concomitant]
     Dosage: FREQUENCY: 4X1200 MG
     Route: 048
     Dates: start: 20090421
  7. IMODIUM [Concomitant]
     Dosage: DRUG NAME: IMODIUM PRANK. DOSE: 4 X DD 1 G.
     Route: 048

REACTIONS (11)
  - BRONCHITIS [None]
  - COUGH [None]
  - DECREASED APPETITE [None]
  - DEHYDRATION [None]
  - DIARRHOEA [None]
  - DISCOMFORT [None]
  - DYSPHAGIA [None]
  - PERFORMANCE STATUS DECREASED [None]
  - PNEUMONIA [None]
  - PYREXIA [None]
  - RESPIRATORY TRACT INFECTION [None]
